FAERS Safety Report 8081281-2 (Version None)
Quarter: 2012Q1

REPORT INFORMATION
  Report Type: 
  Country: None (occurrence: None)
  Receive Date: 20120130
  Receipt Date: 20120125
  Transmission Date: 20120608
  Serious: Yes (Death)
  Sender: FDA-Public Use
  Company Number: US-US-EMD SERONO, INC.-7109124

PATIENT
  Sex: Male

DRUGS (1)
  1. REBIF [Suspect]
     Route: 064

REACTIONS (2)
  - SUDDEN INFANT DEATH SYNDROME [None]
  - FOETAL EXPOSURE DURING PREGNANCY [None]
